FAERS Safety Report 7352499-9 (Version None)
Quarter: 2011Q1

REPORT INFORMATION
  Report Type: 
  Country: None (occurrence: None)
  Receive Date: 20110315
  Receipt Date: 20110310
  Transmission Date: 20110831
  Serious: Yes (Death, Hospitalization, Other)
  Sender: FDA-Public Use
  Company Number: PHEH2006US10835

PATIENT
  Sex: Female

DRUGS (13)
  1. ZOMETA [Suspect]
     Dosage: UNK
     Dates: start: 20071001
  2. NAVELBINE [Concomitant]
     Dosage: UNK
     Dates: start: 20050515, end: 20060501
  3. ZOMETA [Suspect]
     Indication: METASTASES TO BONE
     Dosage: 4 MG MONTHLY
     Dates: start: 20040310, end: 20050516
  4. HERCEPTIN [Concomitant]
     Dosage: 168 MG WEEKLY
     Dates: start: 20050516
  5. PERIDEX [Concomitant]
     Dosage: BID
  6. XELODA [Concomitant]
     Dosage: UNK
  7. DEXAMETHASONE [Concomitant]
     Indication: PROPHYLAXIS
     Dosage: 10 MG WEEKLY
     Dates: start: 20060605
  8. FEMARA [Concomitant]
     Dosage: UNK
     Dates: start: 20040218, end: 20050201
  9. TYKERB [Concomitant]
  10. ABRAXANE [Concomitant]
     Dosage: UNK
  11. TAXOTERE [Concomitant]
     Dosage: 47 MG WEEKLY
     Dates: start: 20060605, end: 20061113
  12. ZOLOFT [Concomitant]
  13. ABRAXANE [Concomitant]
     Dosage: UNK
     Dates: end: 20090423

REACTIONS (41)
  - IMPAIRED HEALING [None]
  - ATELECTASIS [None]
  - JOINT EFFUSION [None]
  - PYREXIA [None]
  - BACK PAIN [None]
  - BACTERIAL INFECTION [None]
  - CUSHINGOID [None]
  - WEIGHT DECREASED [None]
  - FEMORAL NECK FRACTURE [None]
  - PATHOLOGICAL FRACTURE [None]
  - METASTASES TO SPINE [None]
  - INFLAMMATION [None]
  - SPINAL OSTEOARTHRITIS [None]
  - DEATH [None]
  - PLEURAL EFFUSION [None]
  - LUNG INFILTRATION [None]
  - PARAESTHESIA [None]
  - URINARY TRACT INFECTION [None]
  - ABDOMINAL PAIN [None]
  - CHILLS [None]
  - PURULENT DISCHARGE [None]
  - PRIMARY SEQUESTRUM [None]
  - ANAEMIA [None]
  - DECREASED APPETITE [None]
  - ACETABULUM FRACTURE [None]
  - ARTHROFIBROSIS [None]
  - NEUROPATHY PERIPHERAL [None]
  - METASTASES TO BONE [None]
  - OSTEONECROSIS OF JAW [None]
  - GINGIVAL PAIN [None]
  - GINGIVITIS [None]
  - RIB FRACTURE [None]
  - CARBOHYDRATE ANTIGEN 15-3 INCREASED [None]
  - ORAL DISORDER [None]
  - OSTEOMYELITIS [None]
  - DENTAL CARIES [None]
  - HYDRONEPHROSIS [None]
  - TREMOR [None]
  - COMPRESSION FRACTURE [None]
  - BONE DISORDER [None]
  - DIARRHOEA [None]
